FAERS Safety Report 15194026 (Version 1)
Quarter: 2018Q3

REPORT INFORMATION
  Report Type: Spontaneous
  Country: US (occurrence: US)
  Receive Date: 20180725
  Receipt Date: 20180725
  Transmission Date: 20181010
  Serious: No
  Sender: FDA-Public Use
  Company Number: US-SHIRE-US201826795

PATIENT
  Age: 24 Year
  Sex: Male
  Weight: 79.82 kg

DRUGS (1)
  1. LIALDA [Suspect]
     Active Substance: MESALAMINE
     Indication: COLITIS ULCERATIVE
     Dosage: 1.2 MG, 1X/DAY:QD
     Route: 065

REACTIONS (2)
  - Inability to afford medication [Unknown]
  - Drug ineffective [Unknown]
